FAERS Safety Report 12799757 (Version 1)
Quarter: 2016Q3

REPORT INFORMATION
  Report Type: Spontaneous
  Country: US (occurrence: US)
  Receive Date: 20160930
  Receipt Date: 20160930
  Transmission Date: 20161109
  Serious: No
  Sender: FDA-Public Use
  Company Number: US-BAXALTA-2016BLT006914

PATIENT
  Age: 37 Year
  Sex: Female

DRUGS (1)
  1. HYQVIA [Suspect]
     Active Substance: HUMAN IMMUNOGLOBULIN G\HYALURONIDASE RECOMBINANT HUMAN
     Indication: IMMUNODEFICIENCY COMMON VARIABLE
     Dosage: 25 ML, EVERY 3 WK
     Route: 065
     Dates: start: 2016

REACTIONS (6)
  - Pyrexia [Unknown]
  - Malaise [Unknown]
  - Infusion site pain [Unknown]
  - Fatigue [Unknown]
  - Underdose [Unknown]
  - Influenza like illness [Unknown]
